FAERS Safety Report 8728210 (Version 3)
Quarter: 2012Q4

REPORT INFORMATION
  Report Type: 
  Country: IL (occurrence: IT)
  Receive Date: 20120817
  Receipt Date: 20121017
  Transmission Date: 20130627
  Serious: Yes (Hospitalization)
  Sender: FDA-Public Use
  Company Number: IT-RANBAXY-2012RR-59012

PATIENT
  Age: 46 Year
  Sex: Male

DRUGS (2)
  1. NAPROXEN [Suspect]
     Indication: PHARYNGITIS
     Dosage: one dosage unit (Total)
     Route: 048
     Dates: start: 20120703, end: 20120703
  2. ESOMEPRAZOLE [Suspect]
     Indication: PROPHYLAXIS AGAINST GASTROINTESTINAL ULCER
     Dosage: one dosage unit (Total)
     Route: 065
     Dates: start: 20120703, end: 20120703

REACTIONS (2)
  - Pyrexia [Unknown]
  - Rash [Unknown]
